FAERS Safety Report 7542645-6 (Version None)
Quarter: 2011Q2

REPORT INFORMATION
  Report Type: 
  Country: None (occurrence: None)
  Receive Date: 20110613
  Receipt Date: 20110603
  Transmission Date: 20111010
  Serious: Yes (Other)
  Sender: FDA-Public Use
  Company Number: US-ASTRAZENECA-2011SE34192

PATIENT
  Age: 57 Year
  Sex: Male
  Weight: 113.4 kg

DRUGS (19)
  1. NOVOLOG [Concomitant]
     Dosage: 70/30
  2. SEROQUEL [Suspect]
     Indication: BIPOLAR DISORDER
     Route: 048
     Dates: start: 19970101, end: 20060501
  3. SEROQUEL [Suspect]
     Route: 048
     Dates: start: 20060501, end: 20060501
  4. SEROQUEL [Suspect]
     Route: 048
     Dates: start: 20060501, end: 20060501
  5. SEROQUEL [Suspect]
     Route: 048
     Dates: start: 20060501, end: 20110529
  6. INSULIN [Concomitant]
  7. METFORMIN HCL [Concomitant]
  8. CELEXA [Concomitant]
  9. LISINOPRIL [Concomitant]
  10. TRAZODONE HCL [Concomitant]
  11. CLONAZEPAM [Concomitant]
  12. CARVEDILOL [Concomitant]
  13. SEROQUEL [Suspect]
     Route: 048
     Dates: start: 20060501, end: 20110529
  14. REMERON [Concomitant]
  15. ADALAT [Concomitant]
  16. LIPITOR [Concomitant]
  17. PROSCAR [Concomitant]
  18. THREE INHALERS [Concomitant]
  19. SEROQUEL [Suspect]
     Indication: SCHIZOPHRENIA
     Route: 048
     Dates: start: 19970101, end: 20060501

REACTIONS (4)
  - SELF-INJURIOUS IDEATION [None]
  - DEPRESSION [None]
  - DRUG DOSE OMISSION [None]
  - CRYING [None]
